FAERS Safety Report 6726083-1 (Version None)
Quarter: 2010Q2

REPORT INFORMATION
  Report Type: 
  Country: None (occurrence: None)
  Receive Date: 20100514
  Receipt Date: 20100430
  Transmission Date: 20101027
  Serious: Yes (Hospitalization)
  Sender: FDA-Public Use
  Company Number: DE-GENENTECH-301490

PATIENT
  Sex: Male
  Weight: 94 kg

DRUGS (2)
  1. RITUXIMAB [Suspect]
     Indication: FELTY'S SYNDROME
     Dosage: 1000 MG, UNK
     Route: 042
     Dates: start: 20081030
  2. BISPHOSPHONATES [Concomitant]
     Indication: PLASMACYTOMA
     Dosage: UNK

REACTIONS (1)
  - SKIN ULCER [None]
